FAERS Safety Report 5973369-4 (Version None)
Quarter: 2008Q4

REPORT INFORMATION
  Report Type: 
  Country: None (occurrence: None)
  Receive Date: 20081201
  Receipt Date: 20080728
  Transmission Date: 20090506
  Serious: Yes (Other)
  Sender: FDA-Public Use
  Company Number: US-AMGEN-KDL295831

PATIENT
  Sex: Female
  Weight: 92.6 kg

DRUGS (1)
  1. ENBREL [Suspect]
     Indication: RHEUMATOID ARTHRITIS
     Route: 058
     Dates: start: 20080628, end: 20080720

REACTIONS (2)
  - DRUG HYPERSENSITIVITY [None]
  - RASH MACULAR [None]
